FAERS Safety Report 8766812 (Version 1)
Quarter: 2012Q4

REPORT INFORMATION
  Report Type: 
  Country: US (occurrence: US)
  Receive Date: 20120904
  Receipt Date: 20120904
  Transmission Date: 20130627
  Serious: Yes (Other)
  Sender: FDA-Public Use
  Company Number: US-BAYER-2012-090743

PATIENT
  Age: 64 Year
  Sex: Male

DRUGS (1)
  1. BETASERON [Suspect]
     Indication: MULTIPLE SCLEROSIS
     Dosage: 6 miu, QOD
     Route: 058
     Dates: start: 20120716, end: 20120826

REACTIONS (4)
  - Bedridden [Recovered/Resolved]
  - Confusional state [Recovered/Resolved]
  - Agnosia [Recovered/Resolved]
  - Mobility decreased [Recovered/Resolved]
